FAERS Safety Report 14541285 (Version 1)
Quarter: 2018Q1

REPORT INFORMATION
  Report Type: Spontaneous
  Country: BR (occurrence: BR)
  Receive Date: 20180216
  Receipt Date: 20180216
  Transmission Date: 20180509
  Serious: Yes (Other)
  Sender: FDA-Public Use
  Company Number: BR-OTSUKA-DJ20102368

PATIENT
  Sex: Male

DRUGS (1)
  1. ARIPIPRAZOLE. [Suspect]
     Active Substance: ARIPIPRAZOLE
     Indication: BIPOLAR DISORDER
     Dosage: 1 DF, UNK
     Route: 048

REACTIONS (6)
  - Palpitations [Unknown]
  - Abnormal behaviour [Unknown]
  - Acute psychosis [Unknown]
  - Blood pressure decreased [Unknown]
  - Tremor [Unknown]
  - Mydriasis [Unknown]
